FAERS Safety Report 13192370 (Version 1)
Quarter: 2017Q1

REPORT INFORMATION
  Report Type: Spontaneous
  Country: US (occurrence: US)
  Receive Date: 20170207
  Receipt Date: 20170207
  Transmission Date: 20170428
  Serious: Yes (Death)
  Sender: FDA-Public Use
  Company Number: None

PATIENT
  Age: 58 Year
  Sex: Female

DRUGS (2)
  1. SHOWER TO SHOWER TALCUM POWDER [Suspect]
     Active Substance: TALC
     Indication: PERINEAL DISORDER
     Route: 061
  2. JOHNSONS BABY POWDER [Suspect]
     Active Substance: TALC
     Indication: PERINEAL DISORDER
     Route: 061

REACTIONS (11)
  - Ovarian epithelial cancer metastatic [None]
  - Cholecystitis acute [None]
  - Metastases to peritoneum [None]
  - Metastases to uterus [None]
  - Metastases to lymph nodes [None]
  - Metastases to fallopian tube [None]
  - Ovarian fibroma [None]
  - Metastases to gallbladder [None]
  - Uterine polyp [None]
  - Fallopian tube cyst [None]
  - Oestrogen receptor assay positive [None]

NARRATIVE: CASE EVENT DATE: 20130415
